FAERS Safety Report 7499760-5 (Version None)
Quarter: 2011Q2

REPORT INFORMATION
  Report Type: 
  Country: None (occurrence: None)
  Receive Date: 20110524
  Receipt Date: 20110516
  Transmission Date: 20111010
  Serious: Yes (Other)
  Sender: FDA-Public Use
  Company Number: FR-ROCHE-777314

PATIENT

DRUGS (2)
  1. BEVACIZUMAB [Suspect]
     Dosage: ON DAYS 1 AND 15 EVERY 4 WEEK
     Route: 065
  2. PLITIDEPSINE [Suspect]
     Dosage: ESCALATING DOSES: 2.8, 3.8 AND 4.8 MG/SQ M.
     Route: 065

REACTIONS (5)
  - MYALGIA [None]
  - ALANINE AMINOTRANSFERASE INCREASED [None]
  - VOMITING [None]
  - FATIGUE [None]
  - NAUSEA [None]
